FAERS Safety Report 9716992 (Version 1)
Quarter: 2013Q4

REPORT INFORMATION
  Report Type: Spontaneous
  Country: US (occurrence: US)
  Receive Date: 20131127
  Receipt Date: 20131127
  Transmission Date: 20140711
  Serious: No
  Sender: FDA-Public Use
  Company Number: US-GILEAD-2009-0020229

PATIENT
  Age: 69 Year
  Sex: Female
  Weight: 58.06 kg

DRUGS (10)
  1. LETAIRIS [Suspect]
     Indication: PULMONARY ARTERIAL HYPERTENSION
     Route: 048
     Dates: start: 20080118
  2. LASIX [Concomitant]
  3. LOTREL [Concomitant]
  4. PREDNISONE [Concomitant]
  5. LEVOXYL [Concomitant]
  6. LIPITOR [Concomitant]
  7. FOSAMAX [Concomitant]
  8. ASPIRIN [Concomitant]
  9. CALTRATE 600 CHW + D PLUS [Concomitant]
  10. CENTRUM [Concomitant]

REACTIONS (3)
  - Dyspnoea [Recovering/Resolving]
  - Oedema peripheral [Recovering/Resolving]
  - Nasal congestion [Recovering/Resolving]
